FAERS Safety Report 12179815 (Version 6)
Quarter: 2016Q2

REPORT INFORMATION
  Report Type: Report from Study
  Country: BE (occurrence: BE)
  Receive Date: 20160314
  Receipt Date: 20160428
  Transmission Date: 20160815
  Serious: Yes (Hospitalization)
  Sender: FDA-Public Use
  Company Number: BE-ABBVIE-16P-013-1572376-00

PATIENT
  Age: 68 Year
  Sex: Female

DRUGS (4)
  1. DUODOPA [Suspect]
     Active Substance: CARBIDOPA\LEVODOPA
     Indication: PARKINSON^S DISEASE
     Dosage: AM=5ML?CD=2.3ML/HR DURING 16HRS?ED=1.5ML
     Route: 050
     Dates: start: 20120109, end: 20120113
  2. DUODOPA [Suspect]
     Active Substance: CARBIDOPA\LEVODOPA
     Dosage: AM=4ML, CD=1 ML DURING 16HRS, ED=1ML
     Route: 050
     Dates: start: 20160426
  3. DUODOPA [Suspect]
     Active Substance: CARBIDOPA\LEVODOPA
     Dosage: DOSES CONTINUOUSLY MONITORED AND ADAPTED
     Route: 050
     Dates: start: 20120113, end: 20150104
  4. DUODOPA [Suspect]
     Active Substance: CARBIDOPA\LEVODOPA
     Dosage: AM=4ML?CD=1.1ML(AM)-0.8ML(PM) /HR DURING 16HRS?ED=1ML
     Route: 050
     Dates: start: 20150104, end: 20160426

REACTIONS (7)
  - Vomiting [Recovered/Resolved]
  - Device difficult to use [Unknown]
  - Procedural pain [Unknown]
  - Device dislocation [Recovered/Resolved]
  - Abdominal pain [Unknown]
  - Device dislocation [Unknown]
  - Scar [Recovering/Resolving]

NARRATIVE: CASE EVENT DATE: 20160323
